FAERS Safety Report 7952741-7 (Version None)
Quarter: 2011Q4

REPORT INFORMATION
  Report Type: 
  Country: None (occurrence: None)
  Receive Date: 20111129
  Receipt Date: 20111117
  Transmission Date: 20120403
  Serious: Yes (Hospitalization)
  Sender: FDA-Public Use
  Company Number: 2011SP054021

PATIENT
  Age: 69 Year
  Sex: Male

DRUGS (6)
  1. ATENOLOL [Concomitant]
  2. WARFARIN SODIUM [Concomitant]
  3. GLYCERYL TRINITRATE [Concomitant]
  4. RAMIPRIL [Concomitant]
  5. MIRTAZAPINE [Suspect]
     Indication: ANXIETY
     Dosage: 15 MG; QD; PO
     Route: 048
     Dates: start: 20110901, end: 20111028
  6. SIMVASTATIN [Concomitant]

REACTIONS (4)
  - ANXIETY [None]
  - HYPERVENTILATION [None]
  - UROSEPSIS [None]
  - HALLUCINATION [None]
